FAERS Safety Report 12877563 (Version 3)
Quarter: 2017Q1

REPORT INFORMATION
  Report Type: Report from Study
  Country: US (occurrence: US)
  Receive Date: 20161024
  Receipt Date: 20170324
  Transmission Date: 20170428
  Serious: No
  Sender: FDA-Public Use
  Company Number: PHHY2016US143908

PATIENT
  Age: 62 Year
  Sex: Female

DRUGS (1)
  1. GILENYA [Suspect]
     Active Substance: FINGOLIMOD HYDROCHLORIDE
     Indication: MULTIPLE SCLEROSIS
     Dosage: UNK, QD
     Route: 048

REACTIONS (6)
  - Sinusitis [Unknown]
  - Gait disturbance [Unknown]
  - Blood bilirubin increased [Unknown]
  - Alanine aminotransferase increased [Unknown]
  - Depressive symptom [Unknown]
  - Aspartate aminotransferase increased [Unknown]

NARRATIVE: CASE EVENT DATE: 20160701
